FAERS Safety Report 17591129 (Version 2)
Quarter: 2020Q2

REPORT INFORMATION
  Report Type: Spontaneous
  Country: US (occurrence: US)
  Receive Date: 20200327
  Receipt Date: 20200401
  Transmission Date: 20200713
  Serious: No
  Sender: FDA-Public Use
  Company Number: US-PFIZER INC-2020123215

PATIENT

DRUGS (2)
  1. GABAPENTIN. [Suspect]
     Active Substance: GABAPENTIN
     Dosage: 4800 MG, DAILY
  2. GABAPENTIN. [Suspect]
     Active Substance: GABAPENTIN
     Dosage: 400 MG, 4X/DAY

REACTIONS (2)
  - Fatigue [Unknown]
  - Accidental overdose [Unknown]
